FAERS Safety Report 6671757-4 (Version None)
Quarter: 2010Q2

REPORT INFORMATION
  Report Type: 
  Country: None (occurrence: None)
  Receive Date: 20100407
  Receipt Date: 20100324
  Transmission Date: 20101027
  Serious: Yes (Death, Other)
  Sender: FDA-Public Use
  Company Number: GB-MYLANLABS-2010S1005112

PATIENT
  Age: 46 Year
  Sex: Male

DRUGS (9)
  1. NAPROXEN [Suspect]
     Indication: ANALGESIC THERAPY
  2. CARBOPLATIN [Suspect]
     Indication: METASTATIC MALIGNANT MELANOMA
  3. DEXAMETHASONE [Suspect]
     Indication: FATIGUE
  4. DIAMORPHINE [Concomitant]
     Indication: ANALGESIC THERAPY
     Route: 058
  5. HYDROCORTISONE [Concomitant]
     Indication: DRUG USE FOR UNKNOWN INDICATION
  6. KETAMINE [Concomitant]
     Indication: ANALGESIC THERAPY
  7. MIDAZOLAM HCL [Concomitant]
     Indication: ANALGESIC THERAPY
     Route: 058
  8. MORPHINE SULFATE [Concomitant]
     Indication: ANALGESIC THERAPY
  9. WARFARIN SODIUM [Concomitant]
     Indication: PULMONARY EMBOLISM

REACTIONS (3)
  - HYPERKALAEMIA [None]
  - HYPONATRAEMIA [None]
  - TUMOUR HAEMORRHAGE [None]
